FAERS Safety Report 19813983 (Version 1)
Quarter: 2021Q3

REPORT INFORMATION
  Report Type: Spontaneous
  Country: SE (occurrence: SE)
  Receive Date: 20210910
  Receipt Date: 20210910
  Transmission Date: 20211014
  Serious: Yes (Other)
  Sender: FDA-Public Use
  Company Number: SE-MYLANLABS-2021M1059108

PATIENT
  Age: 26 Year
  Sex: Female

DRUGS (6)
  1. METOPROLOL. [Suspect]
     Active Substance: METOPROLOL
     Indication: MIGRAINE PROPHYLAXIS
     Dosage: 50 MG 1+1
     Route: 048
     Dates: start: 202009, end: 202101
  2. SAROTEN [Concomitant]
     Active Substance: AMITRIPTYLINE
     Dosage: UNK
     Dates: start: 20191009
  3. NAPROXEN. [Concomitant]
     Active Substance: NAPROXEN
     Dosage: 500 MG VB
     Dates: start: 20200127
  4. ZOMIG [Concomitant]
     Active Substance: ZOLMITRIPTAN
     Dosage: VB
     Dates: start: 20190219
  5. EXLUTENA [Concomitant]
     Active Substance: LYNESTRENOL
     Dosage: UNK
     Dates: start: 20191107
  6. OMECAT [Concomitant]
     Active Substance: OMEPRAZOLE
     Dosage: UNK
     Dates: start: 20200127

REACTIONS (1)
  - Intermenstrual bleeding [Recovered/Resolved]

NARRATIVE: CASE EVENT DATE: 202009
